FAERS Safety Report 17862384 (Version 1)
Quarter: 2020Q2

REPORT INFORMATION
  Report Type: Spontaneous
  Country: US (occurrence: US)
  Receive Date: 20200604
  Receipt Date: 20200604
  Transmission Date: 20200714
  Serious: No
  Sender: FDA-Public Use
  Company Number: US-THERATECHNOLOGIES INC.-2020-THE-TES-000007

PATIENT
  Age: 63 Year
  Sex: Female

DRUGS (3)
  1. EGRIFTA SV [Suspect]
     Active Substance: TESAMORELIN ACETATE
     Indication: LIPODYSTROPHY ACQUIRED
     Dosage: 1.4 MG, QD
     Route: 058
     Dates: start: 20200131
  2. EGRIFTA [Suspect]
     Active Substance: TESAMORELIN ACETATE
     Indication: LIPODYSTROPHY ACQUIRED
     Dosage: 2 MG, QD
     Route: 058
     Dates: end: 20200101
  3. EGRIFTA [Suspect]
     Active Substance: TESAMORELIN ACETATE
     Dosage: 2 MG, QD
     Route: 058
     Dates: start: 20200131

REACTIONS (6)
  - Blood cholesterol increased [Unknown]
  - Injection site pruritus [Recovered/Resolved]
  - Blood pressure increased [Unknown]
  - Injection site bruising [Not Recovered/Not Resolved]
  - Pain [Unknown]
  - Injection site bruising [Recovered/Resolved]

NARRATIVE: CASE EVENT DATE: 20200102
